FAERS Safety Report 6472157-2 (Version None)
Quarter: 2009Q4

REPORT INFORMATION
  Report Type: 
  Country: None (occurrence: None)
  Receive Date: 20091203
  Receipt Date: 20091119
  Transmission Date: 20100525
  Serious: Yes (Hospitalization)
  Sender: FDA-Public Use
  Company Number: DE-MYLANLABS-2009S1020160

PATIENT
  Age: 82 Year
  Sex: Female
  Weight: 68 kg

DRUGS (11)
  1. RAMIPRIL [Interacting]
     Indication: HYPERTENSION
     Route: 048
  2. XIPAMIDE [Interacting]
     Indication: HYPERTENSION
     Route: 048
     Dates: start: 20080601
  3. TORSEMIDE [Interacting]
     Indication: HYPERTENSION
     Route: 048
     Dates: start: 20080601, end: 20090712
  4. ACETYLSALICYLIC ACID [Interacting]
     Indication: CEREBROVASCULAR ACCIDENT
     Route: 048
  5. BISOPROLOL [Suspect]
     Indication: HYPERTENSION
     Route: 048
     Dates: start: 20080601
  6. MOXONIDINE [Interacting]
     Indication: HYPERTENSION
     Route: 048
     Dates: start: 20080601
  7. VALORON /00205402/ [Interacting]
     Indication: PAIN
     Dosage: 1 DF= 100MG TILIDIN + 8MG HYDROCHLORID
     Route: 048
     Dates: start: 20090701
  8. PANTOZOL [Concomitant]
     Indication: PROPHYLAXIS AGAINST GASTROINTESTINAL ULCER
     Route: 048
  9. METFORMIN HCL [Concomitant]
     Indication: TYPE 2 DIABETES MELLITUS
     Route: 048
     Dates: start: 20080601, end: 20090712
  10. ALLOPURINOL [Concomitant]
     Indication: DRUG USE FOR UNKNOWN INDICATION
     Route: 048
     Dates: start: 20080601, end: 20090712
  11. NOVALGIN [Concomitant]
     Indication: PAIN
     Route: 048

REACTIONS (2)
  - DRUG INTERACTION [None]
  - RENAL FAILURE ACUTE [None]
